FAERS Safety Report 5304983-7 (Version None)
Quarter: 2007Q2

REPORT INFORMATION
  Report Type: 
  Country: None (occurrence: None)
  Receive Date: 20070423
  Receipt Date: 20070416
  Transmission Date: 20071010
  Serious: Yes (Other)
  Sender: FDA-Public Use
  Company Number: AU-PFIZER INC-2007023863

PATIENT
  Sex: Female
  Weight: 76.8 kg

DRUGS (8)
  1. ZELDOX (CAPSULES) [Suspect]
     Indication: BIPOLAR DISORDER
     Route: 048
  2. VALPROATE SODIUM [Concomitant]
     Dosage: DAILY DOSE:1000MG-TEXT:500MG BID
     Route: 048
  3. FLUPENTIXOL [Concomitant]
  4. SEROQUEL [Concomitant]
  5. BENZOTROPINE [Concomitant]
     Dosage: DAILY DOSE:4MG-TEXT:2 MG BID
  6. LORAZEPAM [Concomitant]
  7. ZUCLOPENTHIXOL DECANOATE [Concomitant]
     Dosage: TEXT:200 MG MONTHLY
     Route: 030
  8. LEVOTHYROXINE SODIUM [Concomitant]

REACTIONS (5)
  - ANTIBODY TEST ABNORMAL [None]
  - BLOOD IMMUNOGLOBULIN E INCREASED [None]
  - CONSTIPATION [None]
  - DYSPEPSIA [None]
  - OEDEMA PERIPHERAL [None]
